FAERS Safety Report 6369219-7 (Version None)
Quarter: 2009Q3

REPORT INFORMATION
  Report Type: 
  Country: None (occurrence: None)
  Receive Date: 20090916
  Receipt Date: 20090915
  Transmission Date: 20100115
  Serious: Yes (Life-Threatening, Hospitalization)
  Sender: FDA-Public Use
  Company Number: ADR20652009

PATIENT
  Age: 60 Year
  Sex: Female

DRUGS (6)
  1. TOPIRAMATE [Suspect]
     Indication: HEADACHE
     Dosage: 50MG ORAL
     Route: 048
     Dates: start: 20080901, end: 20090201
  2. BECLOMETHASONE DIPROPIONATE [Concomitant]
  3. GABAPENTIN [Concomitant]
  4. RANITIDINE [Concomitant]
  5. SIMVASTATIN [Concomitant]
  6. VENTOLIN [Concomitant]

REACTIONS (1)
  - PULMONARY EMBOLISM [None]
